FAERS Safety Report 9306375 (Version 1)
Quarter: 2013Q2

REPORT INFORMATION
  Report Type: Spontaneous
  Country: US (occurrence: None)
  Receive Date: 20130520
  Receipt Date: 20130520
  Transmission Date: 20140414
  Serious: Yes (Other)
  Sender: FDA-Public Use
  Company Number: DE-2013-1317

PATIENT
  Age: 52 Year
  Sex: Female

DRUGS (4)
  1. NAVELBINE (VINORELBINE TARTRATE) INFUSION [Suspect]
     Indication: BREAST CANCER METASTATIC
     Route: 042
     Dates: start: 20130312
  2. RINGER (CALCIUM CHLORIDE DIHYDRATE, POTASSIUM CHLORIDE, SODIUM CHLORIDE) [Concomitant]
  3. GRANISETRON (GRANISETRON HYDROCHLORIDE) [Concomitant]
  4. DEXAMETHASONE (DEXAMETHASONE SODIUM PHOSPHATE) [Concomitant]

REACTIONS (3)
  - Swelling [None]
  - Vessel puncture site infection [None]
  - Pain [None]
